FAERS Safety Report 24529709 (Version 4)
Quarter: 2024Q4

REPORT INFORMATION
  Report Type: Spontaneous
  Country: CN (occurrence: CN)
  Receive Date: 20241021
  Receipt Date: 20241211
  Transmission Date: 20250115
  Serious: Yes (Life-Threatening, Hospitalization, Other)
  Sender: PFIZER
  Company Number: CN-PFIZER INC-PV202400114702

PATIENT
  Age: 45 Year
  Sex: Male

DRUGS (39)
  1. BENEFIX [Suspect]
     Active Substance: COAGULATION FACTOR IX RECOMBINANT HUMAN\ISOPROPYL ALCOHOL
     Dosage: UNK
     Dates: start: 20220630
  2. BENEFIX [Suspect]
     Active Substance: COAGULATION FACTOR IX RECOMBINANT HUMAN\ISOPROPYL ALCOHOL
     Dosage: 2000 IU, ST
     Route: 042
     Dates: start: 20230726
  3. BENEFIX [Suspect]
     Active Substance: COAGULATION FACTOR IX RECOMBINANT HUMAN\ISOPROPYL ALCOHOL
     Dosage: 2000 IU, ST
     Route: 042
     Dates: start: 20230727
  4. BENEFIX [Suspect]
     Active Substance: COAGULATION FACTOR IX RECOMBINANT HUMAN\ISOPROPYL ALCOHOL
     Dosage: 2000 IU, ST
     Route: 042
     Dates: start: 20240705
  5. BENEFIX [Suspect]
     Active Substance: COAGULATION FACTOR IX RECOMBINANT HUMAN\ISOPROPYL ALCOHOL
     Dosage: 2000 IU, ST
     Route: 042
     Dates: start: 20240708
  6. BENEFIX [Suspect]
     Active Substance: COAGULATION FACTOR IX RECOMBINANT HUMAN\ISOPROPYL ALCOHOL
     Dosage: 2000 IU, ST
     Route: 042
     Dates: start: 20240708
  7. BENEFIX [Suspect]
     Active Substance: COAGULATION FACTOR IX RECOMBINANT HUMAN\ISOPROPYL ALCOHOL
     Dosage: 2000 IU, ST
     Route: 042
     Dates: start: 20240708
  8. BENEFIX [Suspect]
     Active Substance: COAGULATION FACTOR IX RECOMBINANT HUMAN\ISOPROPYL ALCOHOL
     Dosage: 3000 IU, ST
     Route: 042
     Dates: start: 20240710
  9. BENEFIX [Suspect]
     Active Substance: COAGULATION FACTOR IX RECOMBINANT HUMAN\ISOPROPYL ALCOHOL
     Dosage: 2000 IU, Q8H
     Route: 042
     Dates: start: 20240711
  10. BENEFIX [Suspect]
     Active Substance: COAGULATION FACTOR IX RECOMBINANT HUMAN\ISOPROPYL ALCOHOL
     Dosage: 2000 IU, ST
     Route: 042
     Dates: start: 20240711
  11. BENEFIX [Suspect]
     Active Substance: COAGULATION FACTOR IX RECOMBINANT HUMAN\ISOPROPYL ALCOHOL
     Dosage: 8000 IU, ST
     Dates: start: 20240713
  12. BENEFIX [Suspect]
     Active Substance: COAGULATION FACTOR IX RECOMBINANT HUMAN\ISOPROPYL ALCOHOL
     Dosage: 2000 IU, Q8H
     Route: 042
     Dates: start: 20240713
  13. BENEFIX [Suspect]
     Active Substance: COAGULATION FACTOR IX RECOMBINANT HUMAN\ISOPROPYL ALCOHOL
     Dosage: 4000 IU, Q8H
     Route: 042
     Dates: start: 20240713
  14. BENEFIX [Suspect]
     Active Substance: COAGULATION FACTOR IX RECOMBINANT HUMAN\ISOPROPYL ALCOHOL
     Dosage: 1000 IU, Q8H
     Route: 041
     Dates: start: 20240714
  15. BENEFIX [Suspect]
     Active Substance: COAGULATION FACTOR IX RECOMBINANT HUMAN\ISOPROPYL ALCOHOL
     Dosage: 1000 IU, Q8H
     Route: 041
     Dates: start: 20240714
  16. BENEFIX [Suspect]
     Active Substance: COAGULATION FACTOR IX RECOMBINANT HUMAN\ISOPROPYL ALCOHOL
     Dosage: 1000 IU, ST
     Dates: start: 20240715
  17. BENEFIX [Suspect]
     Active Substance: COAGULATION FACTOR IX RECOMBINANT HUMAN\ISOPROPYL ALCOHOL
     Dosage: 1000 IU, Q8H
     Route: 041
     Dates: start: 20240715
  18. BENEFIX [Suspect]
     Active Substance: COAGULATION FACTOR IX RECOMBINANT HUMAN\ISOPROPYL ALCOHOL
     Dosage: 750 IU, Q8H
     Route: 042
     Dates: start: 20240716
  19. BENEFIX [Suspect]
     Active Substance: COAGULATION FACTOR IX RECOMBINANT HUMAN\ISOPROPYL ALCOHOL
     Dosage: 500 IU, Q8H
     Route: 042
     Dates: start: 20240718
  20. BENEFIX [Suspect]
     Active Substance: COAGULATION FACTOR IX RECOMBINANT HUMAN\ISOPROPYL ALCOHOL
     Dosage: 6000 IU, ST
     Route: 042
     Dates: start: 20240820
  21. BENEFIX [Suspect]
     Active Substance: COAGULATION FACTOR IX RECOMBINANT HUMAN\ISOPROPYL ALCOHOL
     Dosage: 10000 IU, ST
     Route: 042
     Dates: start: 20240821
  22. BENEFIX [Suspect]
     Active Substance: COAGULATION FACTOR IX RECOMBINANT HUMAN\ISOPROPYL ALCOHOL
     Dosage: 4000 IU, ST
     Route: 042
     Dates: start: 20240821
  23. BENEFIX [Suspect]
     Active Substance: COAGULATION FACTOR IX RECOMBINANT HUMAN\ISOPROPYL ALCOHOL
     Dosage: 1000IUQD
     Route: 041
     Dates: start: 20240904
  24. BENEFIX [Suspect]
     Active Substance: COAGULATION FACTOR IX RECOMBINANT HUMAN\ISOPROPYL ALCOHOL
     Dosage: 1000 IU, ST
     Route: 042
     Dates: start: 20240904
  25. BENEFIX [Suspect]
     Active Substance: COAGULATION FACTOR IX RECOMBINANT HUMAN\ISOPROPYL ALCOHOL
     Dosage: 1000 IU, QD
     Route: 042
     Dates: start: 20240905
  26. BENEFIX [Suspect]
     Active Substance: COAGULATION FACTOR IX RECOMBINANT HUMAN\ISOPROPYL ALCOHOL
     Dosage: 1000 IU, ST
     Route: 042
     Dates: start: 20240905
  27. BENEFIX [Suspect]
     Active Substance: COAGULATION FACTOR IX RECOMBINANT HUMAN\ISOPROPYL ALCOHOL
     Dosage: 1000 IU, ST
     Route: 042
     Dates: start: 20240912
  28. BENEFIX [Suspect]
     Active Substance: COAGULATION FACTOR IX RECOMBINANT HUMAN\ISOPROPYL ALCOHOL
     Dosage: 1000 IU, ST
     Route: 042
     Dates: start: 20240918
  29. BENEFIX [Suspect]
     Active Substance: COAGULATION FACTOR IX RECOMBINANT HUMAN\ISOPROPYL ALCOHOL
     Dosage: 1000 IU, QD
     Route: 042
     Dates: start: 20240919
  30. BENEFIX [Suspect]
     Active Substance: COAGULATION FACTOR IX RECOMBINANT HUMAN\ISOPROPYL ALCOHOL
     Dosage: 7500 IU, ST
     Route: 041
     Dates: start: 20241011
  31. BENEFIX [Suspect]
     Active Substance: COAGULATION FACTOR IX RECOMBINANT HUMAN\ISOPROPYL ALCOHOL
     Dosage: 6000 IU, QD
     Route: 042
     Dates: start: 20241012
  32. BENEFIX [Suspect]
     Active Substance: COAGULATION FACTOR IX RECOMBINANT HUMAN\ISOPROPYL ALCOHOL
     Dosage: 3000 IU, QD
     Route: 042
     Dates: start: 20241014
  33. BENEFIX [Suspect]
     Active Substance: COAGULATION FACTOR IX RECOMBINANT HUMAN\ISOPROPYL ALCOHOL
     Dosage: 1500 IU, BID
     Route: 042
     Dates: start: 20241014
  34. BENEFIX [Suspect]
     Active Substance: COAGULATION FACTOR IX RECOMBINANT HUMAN\ISOPROPYL ALCOHOL
     Dosage: 3000 IU, ST
     Route: 042
     Dates: start: 20241014
  35. BENEFIX [Suspect]
     Active Substance: COAGULATION FACTOR IX RECOMBINANT HUMAN\ISOPROPYL ALCOHOL
     Dosage: 3000 IU, ST
     Dates: start: 20241014
  36. BENEFIX [Suspect]
     Active Substance: COAGULATION FACTOR IX RECOMBINANT HUMAN\ISOPROPYL ALCOHOL
     Dosage: 6000 IU, QD
     Route: 042
     Dates: start: 20241015
  37. BENEFIX [Suspect]
     Active Substance: COAGULATION FACTOR IX RECOMBINANT HUMAN\ISOPROPYL ALCOHOL
     Dosage: 7500 IU, ST
     Route: 042
     Dates: start: 20241016
  38. BENEFIX [Suspect]
     Active Substance: COAGULATION FACTOR IX RECOMBINANT HUMAN\ISOPROPYL ALCOHOL
     Dosage: 7500 IU, ST
     Route: 042
     Dates: start: 20241017
  39. BENEFIX [Suspect]
     Active Substance: COAGULATION FACTOR IX RECOMBINANT HUMAN\ISOPROPYL ALCOHOL
     Dosage: 250 IU, ST
     Route: 042
     Dates: start: 20241018

REACTIONS (20)
  - Cerebral haemorrhage [Unknown]
  - Coma [Unknown]
  - Shock [Unknown]
  - Hypotension [Unknown]
  - Vomiting [Unknown]
  - Peripheral swelling [Unknown]
  - Condition aggravated [Unknown]
  - Joint range of motion decreased [Unknown]
  - Ecchymosis [Unknown]
  - Petechiae [Unknown]
  - Haemorrhage [Unknown]
  - Skin exfoliation [Unknown]
  - Soft tissue haemorrhage [Unknown]
  - Haemorrhage subcutaneous [Unknown]
  - Oedema [Unknown]
  - Haematoma muscle [Unknown]
  - Hip disarticulation [Unknown]
  - Off label use [Unknown]
  - Off label use [Unknown]
  - Product preparation issue [Unknown]

NARRATIVE: CASE EVENT DATE: 20240101
